FAERS Safety Report 5187789-1 (Version None)
Quarter: 2006Q4

REPORT INFORMATION
  Report Type: 
  Country: None (occurrence: None)
  Receive Date: 20061221
  Receipt Date: 20061211
  Transmission Date: 20070319
  Serious: Yes (Other)
  Sender: FDA-Public Use
  Company Number: PHBS2006NL19257

PATIENT
  Age: 29 Year
  Sex: Female
  Weight: 45 kg

DRUGS (2)
  1. RITALIN [Suspect]
     Indication: ATTENTION DEFICIT/HYPERACTIVITY DISORDER
     Dosage: 10 MG/D
     Route: 048
     Dates: start: 20000918
  2. RITALIN [Suspect]
     Dosage: 50 MG/D
     Route: 048

REACTIONS (9)
  - DENTAL CARIES [None]
  - GINGIVAL PAIN [None]
  - GINGIVITIS [None]
  - PERIODONTITIS [None]
  - SINUSITIS [None]
  - SKIN DISORDER [None]
  - TOOTH DISCOLOURATION [None]
  - TOOTH DISORDER [None]
  - TOOTH EXTRACTION [None]
